FAERS Safety Report 14672481 (Version 1)
Quarter: 2018Q1

REPORT INFORMATION
  Report Type: Spontaneous
  Country: US (occurrence: US)
  Receive Date: 20180323
  Receipt Date: 20180323
  Transmission Date: 20180509
  Serious: Yes (Hospitalization)
  Sender: FDA-Public Use
  Company Number: US-PFIZER INC-2018116068

PATIENT
  Age: 34 Year
  Sex: Female

DRUGS (4)
  1. SUBUTEX [Concomitant]
     Active Substance: BUPRENORPHINE HYDROCHLORIDE
     Indication: INTERVERTEBRAL DISC PROTRUSION
     Dosage: 8 MG, 4X/DAY
     Route: 060
     Dates: start: 201412
  2. SERTRALINE HCL [Suspect]
     Active Substance: SERTRALINE HYDROCHLORIDE
     Indication: ANTIDEPRESSANT THERAPY
     Dosage: 100 MG, DAILY (50MG X 2)
     Route: 048
     Dates: end: 20180228
  3. SUBUTEX [Concomitant]
     Active Substance: BUPRENORPHINE HYDROCHLORIDE
     Indication: PAIN
  4. IBUPROFEN. [Concomitant]
     Active Substance: IBUPROFEN
     Indication: PAIN
     Dosage: 800 MG, AS NEEDED
     Route: 048

REACTIONS (15)
  - Anxiety [Unknown]
  - Tremor [Unknown]
  - Aggression [Unknown]
  - Decreased appetite [Recovered/Resolved with Sequelae]
  - Insomnia [Unknown]
  - Panic attack [Unknown]
  - Syncope [Recovered/Resolved with Sequelae]
  - Logorrhoea [Unknown]
  - Feeling of body temperature change [Unknown]
  - Bowel movement irregularity [Unknown]
  - Abnormal behaviour [Not Recovered/Not Resolved]
  - Paranoia [Unknown]
  - Condition aggravated [Unknown]
  - Weight decreased [Recovered/Resolved with Sequelae]
  - Agitation [Unknown]

NARRATIVE: CASE EVENT DATE: 201802
